FAERS Safety Report 6431983-6 (Version None)
Quarter: 2009Q4

REPORT INFORMATION
  Report Type: 
  Country: None (occurrence: None)
  Receive Date: 20091109
  Receipt Date: 20091030
  Transmission Date: 20100525
  Serious: Yes (Life-Threatening, Other)
  Sender: FDA-Public Use
  Company Number: JP-JNJFOC-20091102062

PATIENT
  Sex: Female

DRUGS (7)
  1. CRAVIT [Suspect]
     Indication: PYREXIA
     Route: 048
     Dates: start: 20091025, end: 20091026
  2. LOXONIN [Concomitant]
     Route: 048
     Dates: start: 20091025
  3. ASPIRIN [Concomitant]
     Route: 048
  4. CLARITIN [Concomitant]
     Route: 048
  5. THEO-SLOW [Concomitant]
     Route: 048
     Dates: start: 20090101
  6. PARIET [Concomitant]
     Route: 048
     Dates: start: 20091002
  7. NEOPHYLLIN INJECTION [Concomitant]
     Route: 065

REACTIONS (7)
  - ALTERED STATE OF CONSCIOUSNESS [None]
  - ATRIAL FIBRILLATION [None]
  - BLOOD CREATINE PHOSPHOKINASE INCREASED [None]
  - CONVULSION [None]
  - INTERNATIONAL NORMALISED RATIO INCREASED [None]
  - MYOGLOBIN BLOOD INCREASED [None]
  - TRANSAMINASES INCREASED [None]
